FAERS Safety Report 5575895-9 (Version None)
Quarter: 2007Q4

REPORT INFORMATION
  Report Type: 
  Country: None (occurrence: None)
  Receive Date: 20071228
  Receipt Date: 20071224
  Transmission Date: 20080405
  Serious: Yes (Hospitalization, Other)
  Sender: FDA-Public Use
  Company Number: FR-BRISTOL-MYERS SQUIBB COMPANY-14019145

PATIENT
  Age: 84 Year
  Sex: Male

DRUGS (16)
  1. SKENAN PROL RELEASE GRAN CAPS 30 MG [Suspect]
     Indication: BACK PAIN
     Route: 048
     Dates: start: 20070828, end: 20070831
  2. APROVEL [Suspect]
  3. IMOVANE [Suspect]
  4. TROSPIUM CHLORIDE [Suspect]
     Route: 048
  5. RISPERDAL [Concomitant]
  6. DISCOTRINE [Concomitant]
  7. HYPERIUM [Concomitant]
  8. FORLAX [Concomitant]
  9. KARDEGIC [Concomitant]
  10. ESIDRIX [Concomitant]
  11. TRAMADOL HCL [Concomitant]
  12. SPASFON [Concomitant]
  13. MOTILIUM [Concomitant]
  14. TRIMEPRAZINE TAB [Concomitant]
  15. INEXIUM [Concomitant]
  16. JOSIR [Concomitant]

REACTIONS (8)
  - BENIGN PROSTATIC HYPERPLASIA [None]
  - DISTURBANCE IN ATTENTION [None]
  - FALL [None]
  - IMMUNOGLOBULINS INCREASED [None]
  - MIOSIS [None]
  - OVERDOSE [None]
  - RENAL FAILURE ACUTE [None]
  - RHABDOMYOLYSIS [None]
